FAERS Safety Report 6016738-9 (Version None)
Quarter: 2008Q4

REPORT INFORMATION
  Report Type: 
  Country: None (occurrence: None)
  Receive Date: 20081222
  Receipt Date: 20081209
  Transmission Date: 20090506
  Serious: No
  Sender: FDA-Public Use
  Company Number: US-B.I. PHARMACEUTICALS,INC./RIDGEFIELD-2008-BP-17539BP

PATIENT
  Age: 77 Year
  Sex: Female
  Weight: 64 kg

DRUGS (6)
  1. SPIRIVA [Suspect]
     Indication: CHRONIC OBSTRUCTIVE PULMONARY DISEASE
     Dosage: 18MCG
     Dates: start: 20081101, end: 20081107
  2. METHOTREXATE [Concomitant]
     Dates: start: 20081001
  3. FOSAMAX [Concomitant]
     Dosage: 70MG
     Dates: start: 20070101
  4. PREDNISONE TAB [Concomitant]
     Dosage: 5MG
     Dates: start: 20081001
  5. ATENOLOL [Concomitant]
     Dosage: 100MG
     Dates: start: 20070101
  6. FOLIC ACID [Concomitant]
     Dosage: 1MG
     Dates: start: 20080101

REACTIONS (2)
  - OESOPHAGEAL PAIN [None]
  - THROAT IRRITATION [None]
